FAERS Safety Report 25877832 (Version 2)
Quarter: 2025Q4

REPORT INFORMATION
  Report Type: Spontaneous
  Country: BY (occurrence: BY)
  Receive Date: 20251003
  Receipt Date: 20251203
  Transmission Date: 20260117
  Serious: Yes (Other)
  Sender: FRESENIUS KABI
  Company Number: BY-FreseniusKabi-FK202513243

PATIENT
  Age: 74 Year
  Sex: Male
  Weight: 88 kg

DRUGS (2)
  1. PROPOFOL [Suspect]
     Active Substance: PROPOFOL
     Indication: Anaesthesia
     Dosage: 100 MG ONCE?START TIME: 08:55 ?END TIME: 08:57
     Route: 040
     Dates: start: 20250828, end: 20250828
  2. PROPOFOL [Suspect]
     Active Substance: PROPOFOL
     Indication: Colonoscopy

REACTIONS (1)
  - Seizure [Recovered/Resolved]

NARRATIVE: CASE EVENT DATE: 20250828
